FAERS Safety Report 16725405 (Version 1)
Quarter: 2019Q3

REPORT INFORMATION
  Report Type: Spontaneous
  Country: IT (occurrence: IT)
  Receive Date: 20190821
  Receipt Date: 20190821
  Transmission Date: 20191005
  Serious: Yes (Hospitalization)
  Sender: FDA-Public Use
  Company Number: IT-ASTRAZENECA-2019SF16481

PATIENT
  Age: 86 Year
  Sex: Female

DRUGS (11)
  1. QUETIAPINE FUMARATE. [Suspect]
     Active Substance: QUETIAPINE FUMARATE
     Indication: DRUG ABUSE
     Dosage: 0.5G ONCE/SINGLE ADMINISTRATION
     Route: 048
     Dates: start: 20190602, end: 20190602
  2. EUTIROX [Concomitant]
     Active Substance: LEVOTHYROXINE SODIUM
     Indication: HYPOTHYROIDISM
     Dosage: 75.0MG UNKNOWN
     Route: 048
  3. MIRTAZAPINE. [Suspect]
     Active Substance: MIRTAZAPINE
     Indication: DRUG ABUSE
     Dosage: 0.45G ONCE/SINGLE ADMINISTRATION
     Route: 065
     Dates: start: 20190602, end: 20190602
  4. TRITTICO [Concomitant]
     Active Substance: TRAZODONE HYDROCHLORIDE
     Indication: COGNITIVE DISORDER
     Dosage: 75.0MG UNKNOWN
     Route: 048
  5. MICARDIS [Suspect]
     Active Substance: TELMISARTAN
     Indication: DRUG ABUSE
     Dosage: 3.2G ONCE/SINGLE ADMINISTRATION
     Route: 048
     Dates: start: 20190602, end: 20190602
  6. XANAX [Concomitant]
     Active Substance: ALPRAZOLAM
     Indication: ANXIETY
     Dosage: 36.0GTT UNKNOWN
     Route: 048
  7. FUROSEMIDE. [Concomitant]
     Active Substance: FUROSEMIDE
     Indication: HYPERTENSION
     Dosage: 25.0MG UNKNOWN
     Route: 048
  8. SIVASTATIN [Concomitant]
     Indication: DYSLIPIDAEMIA
     Dosage: 20.0MG UNKNOWN
     Route: 048
  9. PANTOPRAZOLE [Concomitant]
     Active Substance: PANTOPRAZOLE
     Indication: EROSIVE OESOPHAGITIS
     Dosage: 40.0MG UNKNOWN
     Route: 048
  10. CORLENTOR [Concomitant]
     Active Substance: IVABRADINE HYDROCHLORIDE
     Indication: ANGINA PECTORIS
     Dosage: 5.0MG UNKNOWN
     Route: 048
  11. LUVION [Concomitant]
     Indication: HYPERTENSION
     Dosage: 25.0MG UNKNOWN
     Route: 048

REACTIONS (3)
  - Intentional self-injury [Recovered/Resolved with Sequelae]
  - Drug abuse [Recovered/Resolved with Sequelae]
  - Atrial fibrillation [Recovered/Resolved with Sequelae]

NARRATIVE: CASE EVENT DATE: 20190602
